FAERS Safety Report 8594522-X (Version None)
Quarter: 2012Q3

REPORT INFORMATION
  Report Type: 
  Country: None (occurrence: None)
  Receive Date: 20120801
  Receipt Date: 20120717
  Transmission Date: 20120928
  Serious: Yes (Hospitalization, Other)
  Sender: FDA-Public Use
  Company Number: CH-1193288

PATIENT
  Age: 42 Year
  Sex: Female

DRUGS (2)
  1. TOBRADEX [Suspect]
     Dosage: (1 DF QID OS OPHTHALMIC)
     Route: 047
  2. CIPROFLOXACIN [Concomitant]

REACTIONS (5)
  - SCLERITIS [None]
  - EYE INFECTION BACTERIAL [None]
  - ENDOPHTHALMITIS [None]
  - ULCERATIVE KERATITIS [None]
  - TREATMENT NONCOMPLIANCE [None]
